FAERS Safety Report 6946476-7 (Version None)
Quarter: 2010Q3

REPORT INFORMATION
  Report Type: 
  Country: None (occurrence: None)
  Receive Date: 20100824
  Receipt Date: 20100810
  Transmission Date: 20110219
  Serious: Yes (Hospitalization)
  Sender: FDA-Public Use
  Company Number: AUR-APL-2010-01944

PATIENT
  Sex: Female
  Weight: 96.1626 kg

DRUGS (24)
  1. LISINOPRIL [Suspect]
     Dosage: 40 MG, 20MG
     Dates: start: 20071217, end: 20100222
  2. LISINOPRIL [Suspect]
     Dosage: 40 MG, 20MG
     Dates: start: 20100223
  3. METOPROLOL TARTRATE [Suspect]
     Indication: HYPERTENSION
     Dosage: 100 MG, DAILY
     Route: 048
     Dates: start: 20050101
  4. STUDY DRUG [Suspect]
     Indication: OSTEOARTHRITIS
     Dosage: TID - ORAL
     Route: 048
     Dates: start: 20100111
  5. STUDY DRUG [Suspect]
     Indication: RHEUMATOID ARTHRITIS
     Dosage: TID - ORAL
     Route: 048
     Dates: start: 20100111
  6. NEXIUM [Concomitant]
  7. CRESTOR [Concomitant]
  8. ACTONEL [Concomitant]
  9. DICLOFENAC [Concomitant]
  10. MURO [Concomitant]
  11. BRIMODINE TARTRATE [Concomitant]
  12. TRAVATAN [Concomitant]
  13. FUROSEMIDE [Concomitant]
  14. POTASSIUM CHLORIDE [Concomitant]
  15. PRAVASTATIN [Concomitant]
  16. NAPROXEN [Concomitant]
  17. HYDROCODONE [Concomitant]
  18. TYLENOL (CAPLET) [Concomitant]
  19. CENTRUM SILVER [Concomitant]
  20. ASPIRIN [Concomitant]
  21. CALTRATE + VIT D [Concomitant]
  22. VITAMIN E [Concomitant]
  23. ASCORBIC ACID [Concomitant]
  24. GARLIC [Concomitant]

REACTIONS (6)
  - DIZZINESS [None]
  - DYSPNOEA [None]
  - FALL [None]
  - HEAD INJURY [None]
  - OSTEOARTHRITIS [None]
  - SYNCOPE [None]
